FAERS Safety Report 4783260-7 (Version None)
Quarter: 2005Q3

REPORT INFORMATION
  Report Type: 
  Country: None (occurrence: None)
  Receive Date: 20050929
  Receipt Date: 20050718
  Transmission Date: 20060218
  Serious: Yes (Hospitalization, Disabling)
  Sender: FDA-Public Use
  Company Number: US-MERCK-0507USA02286

PATIENT
  Age: 34 Year
  Sex: Male
  Weight: 95 kg

DRUGS (4)
  1. VIOXX [Suspect]
     Indication: INFLAMMATION
     Route: 048
     Dates: start: 19980101, end: 20020101
  2. VIOXX [Suspect]
     Route: 048
     Dates: start: 19980101, end: 20020101
  3. VIOXX [Suspect]
     Indication: SURGERY
     Route: 048
     Dates: start: 19980101, end: 20020101
  4. VIOXX [Suspect]
     Route: 048
     Dates: start: 19980101, end: 20020101

REACTIONS (5)
  - BACK PAIN [None]
  - DEPRESSION [None]
  - MYOCARDIAL INFARCTION [None]
  - OVERDOSE [None]
  - PAIN IN EXTREMITY [None]
